FAERS Safety Report 25123699 (Version 2)
Quarter: 2025Q3

REPORT INFORMATION
  Report Type: Report from Study
  Country: ZA (occurrence: ZA)
  Receive Date: 20250326
  Receipt Date: 20250803
  Transmission Date: 20251020
  Serious: Yes (Other)
  Sender: ALEXION PHARMACEUTICALS
  Company Number: ZA-AstraZeneca-CH-00830790A

PATIENT
  Age: 80 Year
  Sex: Female

DRUGS (7)
  1. DAPAGLIFLOZIN [Suspect]
     Active Substance: DAPAGLIFLOZIN
     Indication: Diabetes mellitus
  2. PERINDOPRIL [Concomitant]
     Active Substance: PERINDOPRIL
     Indication: Hypertension
  3. SIMVASTATIN [Concomitant]
     Active Substance: SIMVASTATIN
     Indication: Blood cholesterol
  4. Pantocid [Concomitant]
     Indication: Ulcer
  5. ECOTRIN [Concomitant]
     Active Substance: ASPIRIN
  6. (6S)-5-methyltetrahydrofolate glucosamine;Aesculus hippocastanum;Beta [Concomitant]
     Route: 065
  7. Amloc [Concomitant]
     Indication: Hypertension
     Route: 065

REACTIONS (1)
  - Glaucoma [Unknown]
